FAERS Safety Report 6946253-7 (Version None)
Quarter: 2010Q3

REPORT INFORMATION
  Report Type: 
  Country: None (occurrence: None)
  Receive Date: 20100824
  Receipt Date: 20100809
  Transmission Date: 20110219
  Serious: Yes (Hospitalization)
  Sender: FDA-Public Use
  Company Number: DSA_43710_2010

PATIENT
  Age: 57 Year
  Sex: Male

DRUGS (9)
  1. ENALAPRIL MALEATE [Suspect]
     Indication: ESSENTIAL HYPERTENSION
     Dosage: 5 MG QD ORAL
     Route: 048
     Dates: start: 20080101, end: 20091231
  2. ETALPHA [Concomitant]
  3. ASPIRIN [Concomitant]
  4. TENORMIN [Concomitant]
  5. LASIX [Concomitant]
  6. LEVEMIR [Concomitant]
  7. ACTRAPID [Concomitant]
  8. COZAAR [Concomitant]
  9. SIMVASTATIN [Concomitant]

REACTIONS (1)
  - ANGIOEDEMA [None]
